FAERS Safety Report 8941984 (Version 4)
Quarter: 2013Q1

REPORT INFORMATION
  Report Type: Spontaneous
  Country: JP (occurrence: JP)
  Receive Date: 20121203
  Receipt Date: 20130211
  Transmission Date: 20140127
  Serious: Yes (Hospitalization, Disabling)
  Sender: FDA-Public Use
  Company Number: JP-009507513-1211JPN012859

PATIENT
  Age: 49 Year
  Sex: Female
  Weight: 42 kg

DRUGS (6)
  1. PEGINTRON [Suspect]
     Indication: CHRONIC HEPATITIS C
     Dosage: 80 MICROGRAM, QW
     Route: 058
     Dates: start: 20111028, end: 20121026
  2. REBETOL [Suspect]
     Indication: CHRONIC HEPATITIS C
     Dosage: 200 MG, TID
     Route: 048
     Dates: start: 20111028, end: 20121026
  3. TELAVIC [Suspect]
     Indication: CHRONIC HEPATITIS C
     Dosage: 750 MG, TID
     Route: 048
     Dates: start: 20120508, end: 20120809
  4. LOXONIN [Concomitant]
     Indication: HEADACHE
     Dosage: 60 MG PER DAY, PRN
     Route: 048
     Dates: start: 20111028
  5. MYSLEE [Concomitant]
     Indication: INSOMNIA
     Dosage: 5 MG PER DAY, PRN
     Route: 048
     Dates: start: 20111028
  6. ALOSENN (SENNA) [Concomitant]
     Indication: CONSTIPATION
     Dosage: 0.5 G PER DAY, PRN
     Route: 048
     Dates: start: 20111102

REACTIONS (1)
  - Neuropathy peripheral [Not Recovered/Not Resolved]
